FAERS Safety Report 5781326-6 (Version None)
Quarter: 2008Q2

REPORT INFORMATION
  Report Type: 
  Country: None (occurrence: None)
  Receive Date: 20080623
  Receipt Date: 20080523
  Transmission Date: 20081010
  Serious: No
  Sender: FDA-Public Use
  Company Number: US-BAYER-200824312NA

PATIENT
  Age: 16 Year
  Sex: Female
  Weight: 87 kg

DRUGS (1)
  1. YAZ [Suspect]
     Indication: ACNE
     Route: 048
     Dates: start: 20080401, end: 20080502

REACTIONS (8)
  - DECREASED APPETITE [None]
  - DIZZINESS [None]
  - DRUG ADMINISTRATION ERROR [None]
  - MENSTRUAL DISORDER [None]
  - MOOD ALTERED [None]
  - NO ADVERSE EVENT [None]
  - OFF LABEL USE [None]
  - WITHDRAWAL BLEEDING IRREGULAR [None]
